FAERS Safety Report 8777617 (Version 1)
Quarter: 2012Q4

REPORT INFORMATION
  Report Type: Report from Study
  Country: US (occurrence: US)
  Receive Date: 20120912
  Receipt Date: 20120912
  Transmission Date: 20130627
  Serious: Yes (Other)
  Sender: FDA-Public Use
  Company Number: US-ABBOTT-12P-163-0931063-00

PATIENT
  Sex: Female

DRUGS (1)
  1. HUMIRA 40 MG/0.8 ML PEN [Suspect]
     Indication: PSORIATIC ARTHROPATHY
     Route: 058
     Dates: start: 201201, end: 201208

REACTIONS (10)
  - Deafness [Unknown]
  - Tinnitus [Unknown]
  - Injection site bruising [Unknown]
  - Injection site haemorrhage [Unknown]
  - Pain in jaw [Unknown]
  - Ear pain [Unknown]
  - Pain [Recovered/Resolved]
  - Haematoma [Unknown]
  - Tinnitus [Unknown]
  - Dizziness [Unknown]
